FAERS Safety Report 9161511 (Version 2)
Quarter: 2014Q2

REPORT INFORMATION
  Report Type: Spontaneous
  Country: US (occurrence: US)
  Receive Date: 20130313
  Receipt Date: 20140408
  Transmission Date: 20141212
  Serious: Yes (Hospitalization, Other)
  Sender: FDA-Public Use
  Company Number: US-B.I. PHARMACEUTICALS,INC./RIDGEFIELD-2013-BI-06141BP

PATIENT
  Sex: Male
  Weight: 90.72 kg

DRUGS (3)
  1. PRADAXA [Suspect]
     Indication: ANTICOAGULANT THERAPY
     Dosage: 300 MG
     Route: 048
     Dates: start: 201010, end: 20120710
  2. PRADAXA [Suspect]
     Indication: THROMBOSIS PROPHYLAXIS
  3. PLAVIX [Concomitant]
     Dosage: 75 MG
     Route: 048

REACTIONS (8)
  - Haemorrhage [Unknown]
  - Fasciitis [Unknown]
  - Compartment syndrome [Unknown]
  - Coagulopathy [Unknown]
  - Myocardial infarction [Unknown]
  - Renal failure acute [Unknown]
  - Pancytopenia [Unknown]
  - Anaemia [Unknown]
